FAERS Safety Report 5269457-0 (Version None)
Quarter: 2007Q1

REPORT INFORMATION
  Report Type: 
  Country: None (occurrence: None)
  Receive Date: 20070320
  Receipt Date: 20070316
  Transmission Date: 20070707
  Serious: Yes (Life-Threatening, Hospitalization)
  Sender: FDA-Public Use
  Company Number: CH-ELI_LILLY_AND_COMPANY-CH200703003355

PATIENT
  Age: 72 Year
  Sex: Female

DRUGS (10)
  1. ZYPREXA [Suspect]
     Indication: SCHIZOPHRENIA
     Dosage: 7.5 MG, DAILY (1/D)
     Route: 048
     Dates: end: 20070216
  2. ZYPREXA [Suspect]
     Dosage: 2.5 MG, EACH EVENING
     Route: 048
     Dates: end: 20070216
  3. ASPIRIN [Concomitant]
     Dosage: 100 MG, DAILY (1/D)
  4. CARVEDILOL [Concomitant]
     Dosage: 25 MG, 2/D
  5. IRBESARTAN [Concomitant]
     Dosage: 300 MG, DAILY (1/D)
  6. SIMVASTATIN [Concomitant]
     Dosage: 20 MG, DAILY (1/D)
  7. EUTHYROX [Concomitant]
     Dosage: 150 UG, DAILY (1/D)
  8. MOVICOL [Concomitant]
     Dosage: 1 UNK, DAILY (1/D)
  9. DAFALGAN [Concomitant]
     Dosage: 1 G, 3/D
  10. TRAMADOL HCL [Concomitant]
     Dosage: 30 GTT, 3/D

REACTIONS (1)
  - INAPPROPRIATE ANTIDIURETIC HORMONE SECRETION [None]
